APPROVED DRUG PRODUCT: SPIRONOLACTONE
Active Ingredient: SPIRONOLACTONE
Strength: 25MG
Dosage Form/Route: TABLET;ORAL
Application: A091426 | Product #001 | TE Code: AB
Applicant: AMNEAL PHARMACEUTICALS OF NEW YORK LLC
Approved: Jul 2, 2010 | RLD: No | RS: No | Type: RX